FAERS Safety Report 23582361 (Version 6)
Quarter: 2024Q3

REPORT INFORMATION
  Report Type: Spontaneous
  Country: US (occurrence: US)
  Receive Date: 20240229
  Receipt Date: 20240819
  Transmission Date: 20241016
  Serious: Yes (Hospitalization, Other)
  Sender: CSL BEHRING
  Company Number: US-BEH-2024169072

PATIENT
  Age: 60 Year
  Sex: Female

DRUGS (5)
  1. HUMATE-P [Suspect]
     Active Substance: HUMAN COAGULATION FACTOR VIII/VON WILLEBRAND FACTOR COMPLEX
     Indication: Von Willebrand^s disease
     Dosage: 4100 (3690-4510) INTERNATIONAL UNIT, REPORTED AS RISTOCETIN COFACTOR UNITS, TIW
     Route: 042
     Dates: start: 202304
  2. HUMATE-P [Suspect]
     Active Substance: HUMAN COAGULATION FACTOR VIII/VON WILLEBRAND FACTOR COMPLEX
     Indication: Prophylaxis
     Dosage: UNK , PRN
     Route: 065
  3. SODIUM CHLORIDE [Concomitant]
     Active Substance: SODIUM CHLORIDE
  4. LIDOCAINE\PRILOCAINE [Concomitant]
     Active Substance: LIDOCAINE\PRILOCAINE
  5. HEPARIN [Concomitant]
     Active Substance: HEPARIN SODIUM

REACTIONS (14)
  - Mouth haemorrhage [Recovered/Resolved]
  - Bruxism [Unknown]
  - Vein disorder [Unknown]
  - Epistaxis [Recovered/Resolved]
  - Product use complaint [Unknown]
  - Epistaxis [Unknown]
  - Gingival bleeding [Unknown]
  - Epistaxis [Unknown]
  - Gingival bleeding [Unknown]
  - Epistaxis [Unknown]
  - Epistaxis [Unknown]
  - Central venous catheterisation [Unknown]
  - Gingival bleeding [Recovered/Resolved]
  - COVID-19 [Recovered/Resolved]

NARRATIVE: CASE EVENT DATE: 20240207
